FAERS Safety Report 16666744 (Version 1)
Quarter: 2019Q3

REPORT INFORMATION
  Report Type: Spontaneous
  Country: US (occurrence: US)
  Receive Date: 20190805
  Receipt Date: 20190805
  Transmission Date: 20191004
  Serious: Yes (Other)
  Sender: FDA-Public Use
  Company Number: US-ACCORD-103203

PATIENT
  Age: 55 Year
  Sex: Female
  Weight: 120.66 kg

DRUGS (26)
  1. ATORVASTATIN [Concomitant]
     Active Substance: ATORVASTATIN
     Dates: start: 20160425
  2. ACETYLSALICYLIC ACID [Concomitant]
     Active Substance: ASPIRIN
     Dates: start: 20150309
  3. TRAMADOL/TRAMADOL HYDROCHLORIDE [Concomitant]
     Dates: start: 20110502, end: 20160608
  4. INSULIN [Concomitant]
     Active Substance: INSULIN NOS
     Dates: start: 20160425
  5. LEVOSALBUTAMOL [Concomitant]
     Active Substance: LEVALBUTEROL
     Dosage: 1.25 MG/3ML
     Dates: start: 20090414
  6. OMEPRAZOLE. [Concomitant]
     Active Substance: OMEPRAZOLE
     Dates: start: 20160724, end: 20170130
  7. HYDROCHLOROTHIAZIDE/TRIAMTERENE [Concomitant]
     Dosage: 25 MG-37.5 MG
     Dates: start: 20100928
  8. SIMVASTATIN. [Concomitant]
     Active Substance: SIMVASTATIN
     Dates: start: 20160624, end: 20160727
  9. MAGNESIUM CITRATE. [Concomitant]
     Active Substance: MAGNESIUM CITRATE
     Dates: start: 20160803
  10. NEOSAR [Suspect]
     Active Substance: CYCLOPHOSPHAMIDE
     Indication: BREAST CANCER RECURRENT
     Dosage: NUMBER OF CYCLES: 04
     Dates: start: 20160906, end: 20161107
  11. DICLOFENAC [Concomitant]
     Active Substance: DICLOFENAC
     Dates: start: 20160402, end: 20180410
  12. LISINOPRIL. [Concomitant]
     Active Substance: LISINOPRIL
     Dates: start: 20160624
  13. PROCHLORPERAZINE. [Concomitant]
     Active Substance: PROCHLORPERAZINE
     Dates: start: 20160902, end: 20161012
  14. DOCETAXEL ACCORD [Suspect]
     Active Substance: DOCETAXEL
     Indication: BREAST CANCER RECURRENT
     Dosage: NUMBER OF CYCLES: 04
     Dates: start: 20160906, end: 20161107
  15. SALBUTAMOL [Concomitant]
     Active Substance: ALBUTEROL
     Dosage: 90 MCG/INH AEROSOL
     Dates: start: 20160115
  16. POTASSIUM [Concomitant]
     Active Substance: POTASSIUM
     Dates: start: 20160425
  17. LEVEMIR [Concomitant]
     Active Substance: INSULIN DETEMIR
     Dosage: 100 UNITS
     Dates: start: 20100425
  18. INSULIN [Concomitant]
     Active Substance: INSULIN NOS
     Dates: start: 20120430
  19. DICLOFENAC [Concomitant]
     Active Substance: DICLOFENAC
     Dates: start: 20160624, end: 20161108
  20. ONDANSETRON [Concomitant]
     Active Substance: ONDANSETRON
     Dates: start: 20160925, end: 20161101
  21. CELECOXIB. [Concomitant]
     Active Substance: CELECOXIB
     Dates: start: 20160425
  22. IRON [Concomitant]
     Active Substance: IRON
     Dates: start: 20160425
  23. ERGOCALCIFEROL. [Concomitant]
     Active Substance: ERGOCALCIFEROL
     Dates: start: 20160425
  24. FLUTICASONE PROPIONATE/SALMETEROL XINAFOATE [Concomitant]
     Dates: start: 20101011, end: 20110305
  25. SALBUTAMOL [Concomitant]
     Active Substance: ALBUTEROL
     Dosage: 2.5 MG/3ML
     Dates: start: 20090411
  26. MONTELUKAST [Concomitant]
     Active Substance: MONTELUKAST SODIUM
     Dates: start: 20160118

REACTIONS (1)
  - Alopecia [Not Recovered/Not Resolved]

NARRATIVE: CASE EVENT DATE: 20160928
